FAERS Safety Report 8036739-9 (Version None)
Quarter: 2012Q1

REPORT INFORMATION
  Report Type: 
  Country: None (occurrence: None)
  Receive Date: 20120111
  Receipt Date: 20120104
  Transmission Date: 20120608
  Serious: Yes (Death, Hospitalization)
  Sender: FDA-Public Use
  Company Number: TR-CELGENEUS-161-C5013-12010240

PATIENT
  Sex: Female
  Weight: 65 kg

DRUGS (1)
  1. LENALIDOMIDE [Suspect]
     Route: 048
     Dates: start: 20100201, end: 20110801

REACTIONS (2)
  - MYELODYSPLASTIC SYNDROME TRANSFORMATION [None]
  - RENAL FAILURE ACUTE [None]
